FAERS Safety Report 7555067-9 (Version None)
Quarter: 2011Q2

REPORT INFORMATION
  Report Type: 
  Country: None (occurrence: None)
  Receive Date: 20110617
  Receipt Date: 20110613
  Transmission Date: 20111010
  Serious: Yes (Other)
  Sender: FDA-Public Use
  Company Number: US-ABBOTT-11P-163-0732346-00

PATIENT
  Sex: Female
  Weight: 90.8 kg

DRUGS (4)
  1. HUMIRA [Suspect]
     Dates: start: 20110501
  2. HUMIRA [Suspect]
     Indication: RHEUMATOID ARTHRITIS
     Dates: start: 20090101, end: 20100101
  3. HUMIRA [Suspect]
     Indication: RHEUMATOID ARTHRITIS
     Dates: start: 20100101, end: 20101001
  4. HUMIRA [Suspect]

REACTIONS (10)
  - RESPIRATORY TRACT CONGESTION [None]
  - PNEUMONIA [None]
  - MEMORY IMPAIRMENT [None]
  - TOOTH LOSS [None]
  - STAPHYLOCOCCAL PHARYNGITIS [None]
  - DYSPNOEA [None]
  - COUGH [None]
  - FALL [None]
  - LACERATION [None]
  - TOOTH INFECTION [None]
